FAERS Safety Report 4998525-3 (Version None)
Quarter: 2006Q2

REPORT INFORMATION
  Report Type: 
  Country: None (occurrence: None)
  Receive Date: 20060508
  Receipt Date: 20060426
  Transmission Date: 20061013
  Serious: Yes (Death, Hospitalization, Other)
  Sender: FDA-Public Use
  Company Number: 2006047939

PATIENT
  Age: 92 Year
  Sex: Female

DRUGS (4)
  1. LYRICA [Suspect]
     Indication: NEUROPATHY
     Dosage: 50 MG (25 MG, 2 IN 1 D), ORAL
     Route: 048
     Dates: start: 20060301, end: 20060101
  2. AMITRIPTYLINE (AMITRIPTYLINE) [Suspect]
     Indication: NEUROPATHY
     Dosage: ORAL
     Route: 048
     Dates: start: 20031201, end: 20060101
  3. LEVOTHYROXINE SODIUM [Concomitant]
  4. PINEX (PARACETAMOL) [Concomitant]

REACTIONS (3)
  - FATIGUE [None]
  - SEDATION [None]
  - SOMNOLENCE [None]
